FAERS Safety Report 9099248 (Version 1)
Quarter: 2013Q1

REPORT INFORMATION
  Report Type: Report from Study
  Country: DE (occurrence: DE)
  Receive Date: 20130214
  Receipt Date: 20130214
  Transmission Date: 20140127
  Serious: Yes (Other)
  Sender: FDA-Public Use
  Company Number: DE-UCBSA-078000

PATIENT
  Age: 22 Year
  Sex: Female

DRUGS (7)
  1. VIMPAT [Suspect]
     Indication: EPILEPSY
     Dosage: DAILY DOSE: 50 MG
     Dates: start: 20110430, end: 2011
  2. VIMPAT [Suspect]
     Indication: EPILEPSY
     Dosage: DAILY DOSE:300 MG
     Dates: start: 2011, end: 2011
  3. VIMPAT [Suspect]
     Indication: EPILEPSY
     Dosage: DAILY DOSE:400 MG
     Dates: start: 2011, end: 20110801
  4. LAMOTRIGINE [Concomitant]
     Indication: EPILEPSY
     Dosage: DAILY DOSE:250 MG
     Dates: end: 2011
  5. LAMOTRIGINE [Concomitant]
     Indication: EPILEPSY
     Dosage: DAILY DOSE:200 MG
     Dates: start: 2011
  6. VALPROATE [Concomitant]
     Indication: EPILEPSY
     Dosage: DAILY DOSE: 1600 MG
     Dates: end: 2011
  7. VALPROATE [Concomitant]
     Indication: EPILEPSY
     Dosage: 1000 MG
     Dates: start: 2011, end: 2011

REACTIONS (2)
  - Convulsion [Unknown]
  - Drug ineffective [Recovered/Resolved]
